FAERS Safety Report 26077504 (Version 1)
Quarter: 2025Q4

REPORT INFORMATION
  Report Type: Spontaneous
  Country: US (occurrence: US)
  Receive Date: 20251121
  Receipt Date: 20251121
  Transmission Date: 20260117
  Serious: No
  Sender: NOVO NORDISK
  Company Number: US-NOVOPROD-1469547

PATIENT
  Sex: Female

DRUGS (1)
  1. TRESIBA [Suspect]
     Active Substance: INSULIN DEGLUDEC
     Indication: Type 2 diabetes mellitus
     Dosage: 14 IU, QD
     Route: 058
     Dates: start: 20250601

REACTIONS (4)
  - Fungal infection [Unknown]
  - Erythema [Unknown]
  - Pruritus [Not Recovered/Not Resolved]
  - Injection site swelling [Unknown]
